FAERS Safety Report 4424034-6 (Version None)
Quarter: 2004Q3

REPORT INFORMATION
  Report Type: 
  Country: None (occurrence: None)
  Receive Date: 20040805
  Receipt Date: 20040728
  Transmission Date: 20050211
  Serious: Yes (Hospitalization)
  Sender: FDA-Public Use
  Company Number: GBWYE413019NOV03

PATIENT
  Age: 50 Year
  Sex: Female

DRUGS (16)
  1. TACROLIMUS, CONTROL FOR SIROLIMUS (TACROLIMUS, CONTROL FOR SIROLIMUS, [Suspect]
     Indication: IMMUNOSUPPRESSION
     Dosage: 2 MG 2X PER 1 DAY ORAL
     Route: 048
     Dates: start: 20000801, end: 20031111
  2. ALFACALCIDOL (ALFACALCIDOL) [Concomitant]
  3. AMLODIPINE [Concomitant]
  4. ERYTHROPOIETIN (ERYTHROPOIETIN) [Concomitant]
  5. ISONIAZID [Concomitant]
  6. LANSOPRAZOLE [Concomitant]
  7. PYRIDOXINE HCL TAB [Concomitant]
  8. VITAMIN B12 (CYANOCOBALAMIN AND DERIVATIVES) (VITAMIN B12 (CYANOCOBALA [Concomitant]
  9. ACETAMINOPHEN [Concomitant]
  10. IRBESARTAN (IRBESARTAN) [Concomitant]
  11. ATORVASTATIN (ATORVASTATIN) [Concomitant]
  12. AQUEOUS (EMULSIFYING WAX/PARAFFIN, LIQUID/WHITE SOFT PARAFFIN) [Concomitant]
  13. DIPROBASE (CETOMACROGOL/CETOSTEARYL ALCOHOL/PARAFFIN, LIQUID/WHITE SOF [Concomitant]
  14. ATENOLOL [Concomitant]
  15. MAXITROL (DEXAMETHASONE/NEOMYCIN SULFATE/POLYMYXIN B SULFATE), DROPS [Concomitant]
  16. MYCOPHENOLATE MOFETIL (MYCOPHENOLATE MOFETIL) [Concomitant]

REACTIONS (4)
  - KIDNEY TRANSPLANT REJECTION [None]
  - PERITONEAL DIALYSIS [None]
  - RENAL FAILURE [None]
  - RENAL FAILURE CHRONIC [None]
